FAERS Safety Report 13340962 (Version 1)
Quarter: 2017Q1

REPORT INFORMATION
  Report Type: Report from Study
  Country: CN (occurrence: CN)
  Receive Date: 20170316
  Receipt Date: 20170316
  Transmission Date: 20170428
  Serious: Yes (Death)
  Sender: FDA-Public Use
  Company Number: CN-ROCHE-1907173

PATIENT

DRUGS (2)
  1. ALTEPLASE [Suspect]
     Active Substance: ALTEPLASE
     Indication: ISCHAEMIC STROKE
     Route: 042
  2. VITAMIN C [Concomitant]
     Active Substance: ASCORBIC ACID
     Indication: PRODUCT USED FOR UNKNOWN INDICATION
     Dosage: UNIT DOSE: 0.25G IN 500ML 5% GLUCOSE SOLUTION (1 IN 1 D)
     Route: 065

REACTIONS (4)
  - Respiratory failure [Fatal]
  - Ischaemic stroke [Fatal]
  - Pneumonia aspiration [Fatal]
  - Dysphagia [Fatal]
